FAERS Safety Report 6300516-7 (Version None)
Quarter: 2009Q3

REPORT INFORMATION
  Report Type: 
  Country: None (occurrence: None)
  Receive Date: 20090806
  Receipt Date: 20090213
  Transmission Date: 20100115
  Serious: No
  Sender: FDA-Public Use
  Company Number: US-ABBOTT-09P-163-0557441-00

PATIENT
  Sex: Male
  Weight: 74.91 kg

DRUGS (8)
  1. DEPAKOTE ER [Suspect]
     Indication: TRAUMATIC BRAIN INJURY
     Route: 048
     Dates: start: 20020101
  2. DEPAKOTE ER [Suspect]
     Indication: CONVULSION
  3. CLONAZEPAM [Concomitant]
     Indication: TREMOR
     Dosage: UNSURE OF STRENGTH AND FREQ
     Route: 048
  4. CLONAZEPAM [Concomitant]
     Indication: CONVULSION PROPHYLAXIS
  5. CLONAZEPAM [Concomitant]
     Indication: AGGRESSION
  6. LEXAPRO [Concomitant]
     Indication: DEPRESSION
     Route: 048
  7. AMANTADINE HCL [Concomitant]
     Indication: AGGRESSION
     Route: 048
  8. AMANTADINE HCL [Concomitant]
     Indication: TRAUMATIC BRAIN INJURY

REACTIONS (2)
  - INCOHERENT [None]
  - THINKING ABNORMAL [None]
